FAERS Safety Report 8508087-1 (Version None)
Quarter: 2012Q3

REPORT INFORMATION
  Report Type: 
  Country: None (occurrence: None)
  Receive Date: 20120713
  Receipt Date: 20120705
  Transmission Date: 20120928
  Serious: Yes (Other)
  Sender: FDA-Public Use
  Company Number: FR-MSD-1207FRA000169

PATIENT

DRUGS (1)
  1. ORGARAN [Suspect]
     Indication: PRODUCT USED FOR UNKNOWN INDICATION
     Dosage: UNK
     Route: 058
     Dates: start: 20120522, end: 20120607

REACTIONS (2)
  - THROMBOCYTOPENIA [None]
  - PLATELET AGGREGATION [None]
